FAERS Safety Report 14497035 (Version 1)
Quarter: 2018Q1

REPORT INFORMATION
  Report Type: Spontaneous
  Country: JP (occurrence: JP)
  Receive Date: 20180207
  Receipt Date: 20180207
  Transmission Date: 20180509
  Serious: Yes (Hospitalization, Other)
  Sender: FDA-Public Use
  Company Number: JP-ROCHE-2054487

PATIENT
  Age: 84 Year
  Sex: Female
  Weight: 51 kg

DRUGS (5)
  1. BONVIVA [Suspect]
     Active Substance: IBANDRONATE SODIUM
     Route: 042
     Dates: start: 201502, end: 201608
  2. PRALIA [Suspect]
     Active Substance: DENOSUMAB
     Indication: OSTEOPOROSIS
     Dosage: /SEP/2017, SHE RECEIVED LAST DOSE OF DENOSUMAB
     Route: 058
     Dates: start: 201609, end: 201709
  3. RECALBON (JAPAN) [Suspect]
     Active Substance: MINODRONIC ACID
     Indication: OSTEOPOROSIS
     Route: 048
     Dates: start: 2013, end: 201401
  4. TERIBONE [Concomitant]
     Active Substance: TERIPARATIDE ACETATE
     Route: 065
     Dates: start: 201411, end: 201501
  5. BONVIVA [Suspect]
     Active Substance: IBANDRONATE SODIUM
     Indication: OSTEOPOROSIS
     Route: 042
     Dates: start: 201402, end: 201410

REACTIONS (2)
  - Atypical femur fracture [Not Recovered/Not Resolved]
  - Spinal compression fracture [Unknown]
